FAERS Safety Report 25772776 (Version 2)
Quarter: 2025Q4

REPORT INFORMATION
  Report Type: Spontaneous
  Country: JP (occurrence: JP)
  Receive Date: 20250908
  Receipt Date: 20251016
  Transmission Date: 20260119
  Serious: Yes (Hospitalization)
  Sender: EISAI
  Company Number: JP-Eisai-202506837_HAL_P_1

PATIENT
  Sex: Female

DRUGS (1)
  1. ERIBULIN [Suspect]
     Active Substance: ERIBULIN
     Indication: Metaplastic breast carcinoma
     Dosage: DOSE UNKNOWN
     Route: 041

REACTIONS (1)
  - Pleural effusion [Unknown]
